FAERS Safety Report 7328405-X (Version None)
Quarter: 2011Q1

REPORT INFORMATION
  Report Type: 
  Country: None (occurrence: None)
  Receive Date: 20110303
  Receipt Date: 20110223
  Transmission Date: 20110831
  Serious: Yes (Death)
  Sender: FDA-Public Use
  Company Number: US-AMGEN-USASP2011009720

PATIENT
  Sex: Male

DRUGS (3)
  1. PREDNISONE [Concomitant]
     Dosage: 20 G, BID
     Dates: start: 20100812
  2. NPLATE [Suspect]
     Indication: THROMBOCYTOPENIA
     Dosage: 225 A?G, UNK
     Dates: start: 20101005, end: 20101103
  3. NPLATE [Suspect]
     Indication: IDIOPATHIC THROMBOCYTOPENIC PURPURA

REACTIONS (1)
  - CORONARY ARTERY DISEASE [None]
